FAERS Safety Report 5755552-6 (Version None)
Quarter: 2008Q2

REPORT INFORMATION
  Report Type: 
  Country: None (occurrence: None)
  Receive Date: 20080602
  Receipt Date: 20080529
  Transmission Date: 20081010
  Serious: Yes (Life-Threatening, Hospitalization)
  Sender: FDA-Public Use
  Company Number: FR-JNJFOC-20080404449

PATIENT
  Sex: Male

DRUGS (4)
  1. EPITOMAX [Suspect]
     Indication: EPILEPSY
     Route: 048
  2. TEGRETOL [Suspect]
     Indication: EPILEPSY
     Route: 048
  3. KEPPRA [Suspect]
     Indication: EPILEPSY
     Route: 048
  4. URBANYL [Concomitant]
     Indication: EPILEPSY

REACTIONS (2)
  - PANCREATITIS ACUTE [None]
  - STATUS EPILEPTICUS [None]
